FAERS Safety Report 20598705 (Version 1)
Quarter: 2022Q1

REPORT INFORMATION
  Report Type: Spontaneous
  Country: DE (occurrence: DE)
  Receive Date: 20220315
  Receipt Date: 20220315
  Transmission Date: 20220424
  Serious: Yes (Life-Threatening)
  Sender: FDA-Public Use
  Company Number: DE-GILEAD-2022-0571453

PATIENT
  Age: 72 Year
  Sex: Female

DRUGS (1)
  1. TRODELVY [Suspect]
     Active Substance: SACITUZUMAB GOVITECAN-HZIY
     Indication: Breast cancer metastatic
     Dosage: 10
     Route: 042
     Dates: start: 20220203, end: 20220210

REACTIONS (4)
  - Anaemia [Unknown]
  - Neutropenia [Unknown]
  - Haemoglobin decreased [Unknown]
  - White blood cell count decreased [Unknown]

NARRATIVE: CASE EVENT DATE: 20220210
